FAERS Safety Report 18361890 (Version 2)
Quarter: 2020Q4

REPORT INFORMATION
  Report Type: Spontaneous
  Country: US (occurrence: US)
  Receive Date: 20201008
  Receipt Date: 20201106
  Transmission Date: 20210114
  Serious: No
  Sender: FDA-Public Use
  Company Number: US-ASTRAZENECA-2020SF25781

PATIENT
  Sex: Female
  Weight: 83 kg

DRUGS (1)
  1. BYDUREON BCISE [Suspect]
     Active Substance: EXENATIDE
     Indication: DIABETES MELLITUS
     Dosage: 2MG WEEKLY FOR THREE YEARS
     Route: 058

REACTIONS (5)
  - Device delivery system issue [Unknown]
  - Pruritus [Not Recovered/Not Resolved]
  - Device leakage [Unknown]
  - Injection site mass [Not Recovered/Not Resolved]
  - Injection site pruritus [Not Recovered/Not Resolved]
